FAERS Safety Report 10811374 (Version 1)
Quarter: 2015Q1

REPORT INFORMATION
  Report Type: Spontaneous
  Country: US (occurrence: None)
  Receive Date: 20150212
  Receipt Date: 20150212
  Transmission Date: 20150721
  Serious: Yes (Other)
  Sender: FDA-Public Use
  Company Number: None

PATIENT
  Age: 32 Year
  Sex: Male
  Weight: 111.13 kg

DRUGS (1)
  1. ADDERALL (GENERIC) 20MG AUROBINDO [Suspect]
     Active Substance: AMPHETAMINE ASPARTATE\AMPHETAMINE SULFATE\DEXTROAMPHETAMINE SACCHARATE\DEXTROAMPHETAMINE SULFATE
     Indication: ATTENTION DEFICIT/HYPERACTIVITY DISORDER
     Dosage: 1  TWICE DAILY TAKEN BY MOUTH
     Route: 048

REACTIONS (8)
  - Product substitution issue [None]
  - Irritability [None]
  - Fatigue [None]
  - Product quality issue [None]
  - Disturbance in attention [None]
  - Depressed level of consciousness [None]
  - Product formulation issue [None]
  - Drug ineffective [None]

NARRATIVE: CASE EVENT DATE: 20150112
